FAERS Safety Report 7965157 (Version 5)
Quarter: 2013Q2

REPORT INFORMATION
  Report Type: Report from Study
  Country: US (occurrence: US)
  Receive Date: 20110527
  Receipt Date: 20130424
  Transmission Date: 20140414
  Serious: Yes (Other)
  Sender: FDA-Public Use
  Company Number: US-UCBSA-022316

PATIENT
  Age: 31 Year
  Sex: Female

DRUGS (12)
  1. KEPPRA XR [Suspect]
     Indication: EPILEPSY
     Dates: start: 20100818, end: 20100818
  2. KEPPRA XR [Suspect]
     Indication: EPILEPSY
     Dates: start: 20100819, end: 20101022
  3. KEPPRA XR [Suspect]
     Indication: EPILEPSY
     Dates: start: 20101023, end: 2010
  4. KEPPRA XR [Suspect]
     Indication: EPILEPSY
     Dosage: 3500 MG/DAY - 4000 MG/DAY
     Dates: start: 20101130, end: 2010
  5. KEPPRA XR [Suspect]
     Indication: EPILEPSY
     Dates: start: 20101207, end: 2010
  6. KEPPRA XR [Suspect]
     Indication: EPILEPSY
     Dates: start: 20101216
  7. KEPPRA [Suspect]
     Indication: EPILEPSY
     Dates: start: 20100428, end: 20110508
  8. KEPPRA [Suspect]
     Indication: EPILEPSY
     Dates: start: 2011
  9. PRENATAL VITAMINS [Concomitant]
     Route: 048
  10. FOLIC ACID [Concomitant]
     Indication: PREGNANCY
     Route: 048
     Dates: start: 201008
  11. MULTIVITAMINS [Concomitant]
     Indication: PREGNANCY
     Dosage: 6 PILLS ONCE DAILY
     Route: 048
  12. MULTIVITAMINS [Concomitant]
     Indication: VITAMIN SUPPLEMENTATION
     Dosage: 6 PILLS ONCE DAILY
     Route: 048

REACTIONS (5)
  - Pre-eclampsia [Unknown]
  - Convulsion [Not Recovered/Not Resolved]
  - Anticonvulsant drug level increased [Unknown]
  - Pregnancy [Recovered/Resolved]
  - Breast feeding [Unknown]
